FAERS Safety Report 7893570-2 (Version None)
Quarter: 2011Q4

REPORT INFORMATION
  Report Type: 
  Country: None (occurrence: None)
  Receive Date: 20111104
  Receipt Date: 20111028
  Transmission Date: 20120403
  Serious: Yes (Hospitalization, Other)
  Sender: FDA-Public Use
  Company Number: JP-CEPHALON-2011005653

PATIENT
  Sex: Male
  Weight: 75 kg

DRUGS (7)
  1. SULFAMETHOXAZOLE AND TRIMETHOPRIM [Concomitant]
     Dates: start: 20110106
  2. ENTECAVIR [Concomitant]
  3. LENOGRASTIM [Concomitant]
     Dates: start: 20110112, end: 20110304
  4. DEXAMETHASONE SODIUM PHOSPHATE [Concomitant]
  5. ACYCLOVIR [Concomitant]
     Dates: start: 20110106
  6. BENDAMUSTINE HCL [Suspect]
     Indication: B-CELL SMALL LYMPHOCYTIC LYMPHOMA
     Route: 042
     Dates: start: 20110106, end: 20110217
  7. GRANISETRON HCL [Concomitant]
     Dates: start: 20110106, end: 20110217

REACTIONS (6)
  - CYTOMEGALOVIRUS INFECTION [None]
  - LYMPHOCYTE COUNT DECREASED [None]
  - BLOOD CREATININE INCREASED [None]
  - PYREXIA [None]
  - HYPOCALCAEMIA [None]
  - DYSGEUSIA [None]
